FAERS Safety Report 16053037 (Version 1)
Quarter: 2019Q1

REPORT INFORMATION
  Report Type: Spontaneous
  Country: GB (occurrence: GB)
  Receive Date: 20190308
  Receipt Date: 20190308
  Transmission Date: 20190418
  Serious: Yes (Hospitalization, Other)
  Sender: FDA-Public Use
  Company Number: GB-PFIZER INC-2019095605

PATIENT
  Age: 69 Year
  Sex: Female
  Weight: 67 kg

DRUGS (2)
  1. SULFASALAZINE. [Suspect]
     Active Substance: SULFASALAZINE
     Indication: RHEUMATOID ARTHRITIS
     Dosage: 500 MG, UNK
     Dates: start: 201812, end: 20190122
  2. TRAMADOL. [Concomitant]
     Active Substance: TRAMADOL
     Dosage: UNK (1-2 4-6 HOURLY AS DIRECTED.)
     Dates: start: 20181120

REACTIONS (4)
  - Rash erythematous [Recovering/Resolving]
  - Vomiting [Recovering/Resolving]
  - Photophobia [Recovering/Resolving]
  - Pyrexia [Recovering/Resolving]

NARRATIVE: CASE EVENT DATE: 20190121
